FAERS Safety Report 7338533-0 (Version None)
Quarter: 2011Q1

REPORT INFORMATION
  Report Type: 
  Country: None (occurrence: None)
  Receive Date: 20110308
  Receipt Date: 20110225
  Transmission Date: 20110831
  Serious: Yes (Hospitalization, Other)
  Sender: FDA-Public Use
  Company Number: AT-JNJFOC-20110202127

PATIENT
  Sex: Female
  Weight: 98 kg

DRUGS (18)
  1. YONDELIS [Suspect]
     Indication: OVARIAN CANCER
     Dosage: CYCLES 1-2
     Route: 042
  2. SIMVASTATIN [Concomitant]
     Route: 065
  3. MAXI-KALZ [Concomitant]
     Route: 065
  4. MOTILIUM [Concomitant]
     Route: 065
  5. FORTECORTIN TABLETS [Concomitant]
     Route: 065
  6. NAVOBAN [Concomitant]
     Indication: ANTIEMETIC SUPPORTIVE CARE
     Route: 065
  7. FEMARA [Concomitant]
     Route: 065
  8. EUTHYROX [Concomitant]
     Route: 065
  9. FRAXIPARIN [Concomitant]
     Route: 065
  10. AMLODIPINE [Concomitant]
     Indication: HYPERTENSION
     Route: 065
  11. YONDELIS [Suspect]
     Dosage: CYCLE 3
     Route: 042
  12. FEMARA [Concomitant]
     Indication: BREAST CANCER
     Route: 065
  13. PANTOLOC [Concomitant]
     Route: 065
  14. METOGASTRON [Concomitant]
     Route: 065
  15. CAELYX [Suspect]
     Indication: OVARIAN CANCER
     Dosage: CYCLE 3
     Route: 042
  16. MEXALEN [Concomitant]
     Route: 065
  17. DICLOBENE [Concomitant]
     Route: 065
  18. ZOLPIDEM TARTRATE [Concomitant]

REACTIONS (8)
  - INFLUENZA LIKE ILLNESS [None]
  - PANCYTOPENIA [None]
  - NAUSEA [None]
  - FATIGUE [None]
  - VOMITING [None]
  - TRANSAMINASES INCREASED [None]
  - BLOOD CREATINE PHOSPHOKINASE INCREASED [None]
  - PYREXIA [None]
